FAERS Safety Report 21186257 (Version 1)
Quarter: 2022Q3

REPORT INFORMATION
  Report Type: Spontaneous
  Country: US (occurrence: US)
  Receive Date: 20220808
  Receipt Date: 20220808
  Transmission Date: 20221026
  Serious: No
  Sender: FDA-Public Use
  Company Number: US-PFIZER INC-PV202200037850

PATIENT

DRUGS (2)
  1. INLYTA [Suspect]
     Active Substance: AXITINIB
     Indication: Metastatic renal cell carcinoma
     Dosage: UNK
  2. PEMBROLIZUMAB [Concomitant]
     Active Substance: PEMBROLIZUMAB
     Indication: Metastatic renal cell carcinoma
     Dosage: UNK

REACTIONS (1)
  - Stomatitis [Unknown]
